FAERS Safety Report 5519852-7 (Version None)
Quarter: 2007Q4

REPORT INFORMATION
  Report Type: 
  Country: None (occurrence: None)
  Receive Date: 20071116
  Receipt Date: 20070919
  Transmission Date: 20080405
  Serious: No
  Sender: FDA-Public Use
  Company Number: A0683023A

PATIENT
  Age: 62 Year
  Sex: Female

DRUGS (6)
  1. COREG CR [Suspect]
     Dosage: 10MG PER DAY
     Route: 048
  2. TOPROL-XL [Suspect]
  3. TRICOR [Concomitant]
  4. MICARDIS [Concomitant]
  5. SYNTHROID [Concomitant]
  6. CARAFATE [Concomitant]

REACTIONS (1)
  - PRURITUS [None]
